FAERS Safety Report 9225287 (Version 1)
Quarter: 2013Q2

REPORT INFORMATION
  Report Type: Spontaneous
  Country: US (occurrence: None)
  Receive Date: 20130410
  Receipt Date: 20130410
  Transmission Date: 20140414
  Serious: Yes (Life-Threatening)
  Sender: FDA-Public Use
  Company Number: None

PATIENT
  Age: 28 Year
  Sex: Male
  Weight: 80 kg

DRUGS (2)
  1. SEREQUEL UNSURE UNSURE [Suspect]
     Indication: DEPRESSION
     Dates: start: 20130322, end: 20130407
  2. SEREQUEL UNSURE UNSURE [Suspect]
     Indication: INSOMNIA
     Dates: start: 20130322, end: 20130407

REACTIONS (4)
  - Dyspnoea [None]
  - Respiratory disorder [None]
  - Gait disturbance [None]
  - Unevaluable event [None]
